FAERS Safety Report 8141739-4 (Version None)
Quarter: 2012Q1

REPORT INFORMATION
  Report Type: 
  Country: None (occurrence: None)
  Receive Date: 20120216
  Receipt Date: 20120208
  Transmission Date: 20120608
  Serious: Yes (Hospitalization)
  Sender: FDA-Public Use
  Company Number: US-ABBOTT-11P-163-0871776-00

PATIENT
  Sex: Female
  Weight: 67.192 kg

DRUGS (4)
  1. MULTIPLE UNKNOWN MEDICATIONS [Concomitant]
     Indication: PRODUCT USED FOR UNKNOWN INDICATION
  2. SYNTHROID [Concomitant]
     Indication: THYROID DISORDER
  3. PLAVIX [Concomitant]
     Indication: PRODUCT USED FOR UNKNOWN INDICATION
  4. HUMIRA [Suspect]
     Indication: RHEUMATOID ARTHRITIS

REACTIONS (7)
  - DEHYDRATION [None]
  - DYSSTASIA [None]
  - ASTHENIA [None]
  - URINARY TRACT INFECTION [None]
  - PAIN IN EXTREMITY [None]
  - FALL [None]
  - HERPES ZOSTER [None]
